FAERS Safety Report 13549615 (Version 20)
Quarter: 2018Q3

REPORT INFORMATION
  Report Type: Report from Study
  Country: CA (occurrence: CA)
  Receive Date: 20170516
  Receipt Date: 20180821
  Transmission Date: 20181010
  Serious: Yes (Death, Hospitalization, Other)
  Sender: FDA-Public Use
  Company Number: PHHY2017CA003598

PATIENT
  Age: 84 Year
  Sex: Female

DRUGS (10)
  1. SIGNIFOR LAR [Suspect]
     Active Substance: PASIREOTIDE
     Indication: ACROMEGALY
     Dosage: 40 MG, QMO (EVERY 4 WEEKS)
     Route: 030
     Dates: start: 20161125, end: 20170415
  2. SIGNIFOR LAR [Suspect]
     Active Substance: PASIREOTIDE
     Dosage: 20 MG, QMO (EVERY 4 WEEK)
     Route: 030
     Dates: start: 20170513
  3. SIGNIFOR LAR [Suspect]
     Active Substance: PASIREOTIDE
     Dosage: 20 MG, (EVERY 6 WEEKS)
     Route: 030
  4. L?THYROXINE [Concomitant]
     Active Substance: LEVOTHYROXINE
     Indication: PRODUCT USED FOR UNKNOWN INDICATION
     Dosage: 125 MG, QD
     Route: 065
  5. CORTISONE ACETATE. [Concomitant]
     Active Substance: CORTISONE ACETATE
     Dosage: 12.5 MG, QD (DAILY PM)
     Route: 065
  6. PANTOLOC [Concomitant]
     Active Substance: PANTOPRAZOLE SODIUM
     Indication: PRODUCT USED FOR UNKNOWN INDICATION
     Dosage: UNK
     Route: 042
  7. SIGNIFOR LAR [Suspect]
     Active Substance: PASIREOTIDE
     Dosage: 20 MG, (EVERY 6 WEEKS
     Route: 030
     Dates: start: 20171209
  8. SIGNIFOR LAR [Suspect]
     Active Substance: PASIREOTIDE
     Dosage: 20 MG, QMO
     Route: 030
     Dates: start: 20171028
  9. CORTISONE ACETATE. [Concomitant]
     Active Substance: CORTISONE ACETATE
     Indication: PRODUCT USED FOR UNKNOWN INDICATION
     Dosage: 25 MG, QD (DAILY AM)
     Route: 065
  10. INFUFER [Concomitant]
     Indication: PRODUCT USED FOR UNKNOWN INDICATION
     Dosage: 50 MG, BIW
     Route: 030

REACTIONS (37)
  - Haemorrhage [Unknown]
  - Soft tissue injury [Unknown]
  - Nasal congestion [Unknown]
  - Hyperglycaemia [Unknown]
  - Vomiting [Unknown]
  - Decreased appetite [Unknown]
  - Joint instability [Unknown]
  - Gastrointestinal disorder [Unknown]
  - Insulin-like growth factor decreased [Unknown]
  - Blood pressure systolic increased [Recovering/Resolving]
  - Lung infection [Recovering/Resolving]
  - Heart rate increased [Recovering/Resolving]
  - Nausea [Unknown]
  - Haemoglobin decreased [Unknown]
  - Inappropriate schedule of drug administration [Unknown]
  - Urinary tract infection [Recovering/Resolving]
  - Gastrointestinal haemorrhage [Unknown]
  - Movement disorder [Unknown]
  - Pain in extremity [Unknown]
  - Breath sounds abnormal [Recovering/Resolving]
  - Fall [Unknown]
  - Agitation [Unknown]
  - Haematoma [Unknown]
  - Blood glucose increased [Recovering/Resolving]
  - Musculoskeletal pain [Unknown]
  - Cough [Recovering/Resolving]
  - Pyrexia [Recovering/Resolving]
  - Death [Fatal]
  - Pneumonia [Recovering/Resolving]
  - Weight decreased [Unknown]
  - Limb injury [Unknown]
  - Lethargy [Unknown]
  - Confusional state [Unknown]
  - Balance disorder [Unknown]
  - Faeces discoloured [Unknown]
  - Respiratory rate increased [Recovering/Resolving]
  - Asthenia [Recovering/Resolving]

NARRATIVE: CASE EVENT DATE: 20170504
